FAERS Safety Report 5233412-7 (Version None)
Quarter: 2007Q1

REPORT INFORMATION
  Report Type: 
  Country: None (occurrence: None)
  Receive Date: 20070206
  Receipt Date: 20070126
  Transmission Date: 20070707
  Serious: Yes (Hospitalization)
  Sender: FDA-Public Use
  Company Number: GXKR2007GB01236

PATIENT
  Sex: Female

DRUGS (10)
  1. ASPIRIN [Suspect]
     Indication: CEREBROVASCULAR ACCIDENT
     Dosage: 75 MG, ORAL
     Route: 048
  2. ARTHROTEC [Suspect]
     Indication: ARTHRITIS
     Dosage: 1 DF, BID, ORAL
     Route: 048
  3. CO-CODAMOL (CODEINE PHOSPHATE, PARACETAMOL) [Concomitant]
  4. FUROSEMIDE [Concomitant]
  5. ISOSORBIDE (ISOSORBIDE) [Concomitant]
  6. LOSARTAN POTASSIUM [Concomitant]
  7. RAMIPRIL [Concomitant]
  8. SALBUTAMOL (SALBUTAMOL) [Concomitant]
  9. SERETIDE (FLUTICASONE PROPIONATE, SALMETEROL XINAFOATE) [Concomitant]
  10. SIMVASTATIN [Concomitant]

REACTIONS (2)
  - DUODENAL ULCER [None]
  - DUODENAL ULCER PERFORATION [None]
